FAERS Safety Report 5392035-X (Version None)
Quarter: 2007Q3

REPORT INFORMATION
  Report Type: 
  Country: None (occurrence: None)
  Receive Date: 20070718
  Receipt Date: 20070718
  Transmission Date: 20080115
  Serious: Yes (Hospitalization)
  Sender: FDA-Public Use
  Company Number: None

PATIENT
  Sex: Female
  Weight: 83.2 kg

DRUGS (2)
  1. CYTARABINE [Suspect]
     Dosage: 31360 MG
     Dates: start: 20070625
  2. ETOPOSIDE [Suspect]
     Dosage: 2448 MG

REACTIONS (3)
  - CAECITIS [None]
  - NEUTROPENIC COLITIS [None]
  - SINUS TACHYCARDIA [None]
